FAERS Safety Report 8938622 (Version 3)
Quarter: 2013Q2

REPORT INFORMATION
  Report Type: Spontaneous
  Country: DK (occurrence: DK)
  Receive Date: 20121203
  Receipt Date: 20130517
  Transmission Date: 20140414
  Serious: Yes (Hospitalization, Other)
  Sender: FDA-Public Use
  Company Number: DK-ELI_LILLY_AND_COMPANY-DK201211008818

PATIENT
  Age: 73 Year
  Sex: Female
  Weight: 56 kg

DRUGS (4)
  1. FORSTEO [Suspect]
     Dosage: 20 UG, QD
     Route: 058
     Dates: start: 20110412, end: 20121002
  2. OXYCONTIN [Concomitant]
     Dosage: 20 MG, BID
  3. CALCIUM [Concomitant]
     Dosage: 400 MG, BID
  4. VITAMIN D [Concomitant]
     Dosage: 70 UG, UNK

REACTIONS (1)
  - Invasive ductal breast carcinoma [Recovering/Resolving]
